FAERS Safety Report 15900208 (Version 1)
Quarter: 2019Q1

REPORT INFORMATION
  Report Type: Spontaneous
  Country: US (occurrence: US)
  Receive Date: 20190131
  Receipt Date: 20190131
  Transmission Date: 20190417
  Serious: Yes (Life-Threatening)
  Sender: FDA-Public Use
  Company Number: None

PATIENT
  Age: 73 Year
  Sex: Female
  Weight: 73.8 kg

DRUGS (1)
  1. NITROFURANTOIN MONO 100 MG CAP [BRAND NAMES: US MACROBID; MACRODANTIN] [Suspect]
     Active Substance: NITROFURANTOIN\NITROFURANTOIN MONOHYDRATE
     Indication: URINARY TRACT INFECTION
     Dosage: ?          QUANTITY:30 CAPSULE(S);?
     Route: 048
     Dates: start: 20190124, end: 20190126

REACTIONS (13)
  - Wheezing [None]
  - Influenza like illness [None]
  - Cough [None]
  - Dry mouth [None]
  - Balance disorder [None]
  - Drug effect incomplete [None]
  - Dyspnoea [None]
  - Renal pain [None]
  - Chest pain [None]
  - Body temperature decreased [None]
  - Product administered to patient of inappropriate age [None]
  - Urinary retention [None]
  - Product substitution issue [None]

NARRATIVE: CASE EVENT DATE: 20190125
